FAERS Safety Report 12197733 (Version 1)
Quarter: 2016Q1

REPORT INFORMATION
  Report Type: Spontaneous
  Country: US (occurrence: None)
  Receive Date: 20160321
  Receipt Date: 20160321
  Transmission Date: 20160526
  Serious: No
  Sender: FDA-Public Use
  Company Number: None

PATIENT
  Age: 50 Year
  Sex: Female
  Weight: 56.7 kg

DRUGS (2)
  1. VENFALAXIN [Concomitant]
  2. COPAXONE [Suspect]
     Active Substance: GLATIRAMER ACETATE
     Indication: MULTIPLE SCLEROSIS
     Dates: start: 20160302, end: 20160316

REACTIONS (10)
  - Pyrexia [None]
  - Injection site pruritus [None]
  - Fall [None]
  - Injection site pain [None]
  - Injection site swelling [None]
  - Injection site erythema [None]
  - Chills [None]
  - Drug dose omission [None]
  - Vomiting [None]
  - Dizziness [None]
